FAERS Safety Report 9374741 (Version 1)
Quarter: 2013Q2

REPORT INFORMATION
  Report Type: Spontaneous
  Country: CN (occurrence: CN)
  Receive Date: 20130628
  Receipt Date: 20130628
  Transmission Date: 20140414
  Serious: Yes (Other)
  Sender: FDA-Public Use
  Company Number: CN-JNJFOC-20130613124

PATIENT
  Age: 37 Year
  Sex: Female

DRUGS (2)
  1. NIZORAL [Suspect]
     Indication: ONYCHOMYCOSIS
     Route: 048
     Dates: start: 20120501, end: 20120601
  2. NIZORAL [Suspect]
     Indication: VAGINAL INFECTION
     Route: 048
     Dates: start: 20120501, end: 20120601

REACTIONS (2)
  - Hepatic function abnormal [Recovered/Resolved]
  - Abdominal discomfort [Recovering/Resolving]
